FAERS Safety Report 9071533 (Version 1)
Quarter: 2013Q1

REPORT INFORMATION
  Report Type: Report from Study
  Country: US (occurrence: US)
  Receive Date: 20130129
  Receipt Date: 20130129
  Transmission Date: 20140127
  Serious: No
  Sender: FDA-Public Use
  Company Number: US-ABBOTT-12P-163-0934131-00

PATIENT
  Sex: Male

DRUGS (1)
  1. HUMIRA 40 MG/ 0.8 ML PRE-FILLED SYRINGE [Suspect]
     Indication: RHEUMATOID ARTHRITIS
     Dosage: HOLD WITH FEVER AND INFECTION
     Route: 058
     Dates: start: 20111110

REACTIONS (4)
  - Arthralgia [Unknown]
  - Colitis [Unknown]
  - Injection site pain [Unknown]
  - No therapeutic response [Unknown]
